FAERS Safety Report 5902059-9 (Version None)
Quarter: 2008Q3

REPORT INFORMATION
  Report Type: 
  Country: None (occurrence: None)
  Receive Date: 20080909
  Receipt Date: 20080111
  Transmission Date: 20090109
  Serious: Yes (Other)
  Sender: FDA-Public Use
  Company Number: US-WYE-H02121408

PATIENT
  Age: 54 Year
  Sex: Female
  Weight: 77.18 kg

DRUGS (4)
  1. ADVIL [Suspect]
     Indication: ARTHRALGIA
     Dosage: ^1-2 LIQUI-GELS AS NEEDED^, ORAL
     Route: 048
     Dates: start: 20070101, end: 20080110
  2. GOLDEN SEAL (GOLDEN SEAL) [Concomitant]
  3. ECHINACEA (ECHINACEA EXTRACT) [Concomitant]
  4. HORSE CHESTNUT (HORSE CHESTNUT EXTRACT) [Concomitant]

REACTIONS (1)
  - GLOSSODYNIA [None]
